FAERS Safety Report 7878735-8 (Version None)
Quarter: 2011Q4

REPORT INFORMATION
  Report Type: 
  Country: None (occurrence: None)
  Receive Date: 20111021
  Receipt Date: 20110809
  Transmission Date: 20120403
  Serious: No
  Sender: FDA-Public Use
  Company Number: US-006050

PATIENT
  Sex: Male

DRUGS (1)
  1. DEGARELIX [Suspect]
     Dates: start: 20110719

REACTIONS (1)
  - INJECTION SITE REACTION [None]
